FAERS Safety Report 23999401 (Version 1)
Quarter: 2024Q2

REPORT INFORMATION
  Report Type: Spontaneous
  Country: IT (occurrence: IT)
  Receive Date: 20240621
  Receipt Date: 20240621
  Transmission Date: 20240716
  Serious: Yes (Hospitalization, Other)
  Sender: FDA-Public Use
  Company Number: None

PATIENT

DRUGS (7)
  1. DELAFLOXACIN MEGLUMINE [Suspect]
     Active Substance: DELAFLOXACIN MEGLUMINE
     Indication: Cellulitis
     Dosage: 300 MILLIGRAM, Q12H
     Route: 042
     Dates: start: 20240417, end: 20240420
  2. DELAFLOXACIN MEGLUMINE [Suspect]
     Active Substance: DELAFLOXACIN MEGLUMINE
     Indication: Cellulitis staphylococcal
  3. ATORVASTATIN [Concomitant]
     Active Substance: ATORVASTATIN
     Indication: Dyslipidaemia
     Dosage: 40 MILLIGRAM
     Route: 048
  4. ASPIRIN [Concomitant]
     Active Substance: ASPIRIN
     Indication: Prophylaxis
     Dosage: 100 MILLIGRAM, 1 IN 24 HOUR
     Route: 048
  5. BISOPROLOL FUMARATE [Concomitant]
     Active Substance: BISOPROLOL FUMARATE
     Indication: Hypertension
     Dosage: UNK
  6. OMEPRAZOLE [Concomitant]
     Active Substance: DONEPEZIL HYDROCHLORIDE\OMEPRAZOLE\OMEPRAZOLE MAGNESIUM
     Indication: Product used for unknown indication
     Dosage: 20 MILLIGRAM
     Route: 048
  7. FOSTER [Concomitant]
     Active Substance: BECLOMETHASONE\FORMOTEROL
     Indication: Bronchitis chronic
     Dosage: 200 MICROGRAMS/6 MICROGRAMS
     Route: 055

REACTIONS (3)
  - Tubulointerstitial nephritis [Recovered/Resolved]
  - Hypercreatinaemia [Recovered/Resolved]
  - Acute kidney injury [Recovered/Resolved]

NARRATIVE: CASE EVENT DATE: 20240419
